FAERS Safety Report 10178138 (Version 1)
Quarter: 2014Q2

REPORT INFORMATION
  Report Type: Spontaneous
  Country: FR (occurrence: FR)
  Receive Date: 20140519
  Receipt Date: 20140519
  Transmission Date: 20141212
  Serious: Yes (Other)
  Sender: FDA-Public Use
  Company Number: FR-ROCHE-1397359

PATIENT
  Age: 75 Year
  Sex: Male

DRUGS (10)
  1. BACTRIM [Suspect]
     Indication: OPPORTUNISTIC INFECTION PROPHYLAXIS
     Route: 048
     Dates: start: 20131228, end: 20140410
  2. ROVALCYTE [Suspect]
     Indication: OPPORTUNISTIC INFECTION PROPHYLAXIS
     Route: 048
     Dates: start: 20131228
  3. ROVALCYTE [Suspect]
     Dosage: REDUCED DOSE
     Route: 048
     Dates: start: 20140414
  4. ALLOPURINOL [Concomitant]
     Indication: MONARTHRITIS
     Route: 065
     Dates: start: 20140410, end: 20140414
  5. COLCHICINE [Concomitant]
     Indication: MONARTHRITIS
     Route: 065
     Dates: start: 20140410, end: 20140414
  6. ADVAGRAF [Concomitant]
     Indication: PRODUCT USED FOR UNKNOWN INDICATION
     Route: 065
  7. ARANESP [Concomitant]
     Indication: PRODUCT USED FOR UNKNOWN INDICATION
     Route: 042
  8. INEXIUM [Concomitant]
     Indication: PRODUCT USED FOR UNKNOWN INDICATION
     Route: 048
  9. CORTANCYL [Concomitant]
     Indication: PRODUCT USED FOR UNKNOWN INDICATION
     Route: 048
  10. LASILIX [Concomitant]
     Indication: PRODUCT USED FOR UNKNOWN INDICATION
     Route: 065

REACTIONS (1)
  - Agranulocytosis [Recovering/Resolving]
